FAERS Safety Report 17333626 (Version 2)
Quarter: 2020Q1

REPORT INFORMATION
  Report Type: Spontaneous
  Country: GB (occurrence: GB)
  Receive Date: 20200128
  Receipt Date: 20200225
  Transmission Date: 20200409
  Serious: Yes (Hospitalization, Other)
  Sender: FDA-Public Use
  Company Number: GB-LUPIN PHARMACEUTICALS INC.-2020-00386

PATIENT
  Age: 76 Year
  Sex: Male

DRUGS (2)
  1. METRONIDAZOLE. [Suspect]
     Active Substance: METRONIDAZOLE
     Indication: ABSCESS NECK
     Dosage: 500 MILLIGRAM, TID
     Route: 042
  2. CEFTRIAXONE. [Suspect]
     Active Substance: CEFTRIAXONE
     Indication: ABSCESS NECK
     Dosage: 2 GRAM, QD
     Route: 042

REACTIONS (4)
  - Therapy non-responder [Unknown]
  - Mediastinal abscess [Recovered/Resolved]
  - Pharyngeal abscess [Recovered/Resolved]
  - Condition aggravated [Recovered/Resolved]
